FAERS Safety Report 24774848 (Version 1)
Quarter: 2024Q4

REPORT INFORMATION
  Report Type: Spontaneous
  Country: CN (occurrence: CN)
  Receive Date: 20241226
  Receipt Date: 20241226
  Transmission Date: 20250114
  Serious: Yes (Other)
  Sender: SANDOZ
  Company Number: CN-002147023-NVSC2024CN237814

PATIENT
  Age: 11 Year
  Sex: Male

DRUGS (1)
  1. LEVETIRACETAM [Suspect]
     Active Substance: LEVETIRACETAM
     Indication: Epilepsy
     Dosage: UNK (REGULARLY FOR MORE THAN 3 YEARS)
     Route: 048

REACTIONS (2)
  - Loss of consciousness [Recovering/Resolving]
  - Epilepsy [Recovering/Resolving]
